FAERS Safety Report 9203075 (Version 1)
Quarter: 2013Q1

REPORT INFORMATION
  Report Type: Spontaneous
  Country: GB (occurrence: None)
  Receive Date: 20130328
  Receipt Date: 20130328
  Transmission Date: 20140127
  Serious: Yes (Other)
  Sender: FDA-Public Use
  Company Number: GER/UKI/13/0028634

PATIENT
  Age: 39 Year
  Sex: Male
  Weight: 74 kg

DRUGS (2)
  1. CIPROFLOXACIN (CIPROFLOXACIN) [Suspect]
     Indication: PRODUCT USED FOR UNKNOWN INDICATION
     Dates: start: 20121217, end: 20121226
  2. AMOXICILLIN (AMOXICILLIN) [Concomitant]

REACTIONS (4)
  - Visual impairment [None]
  - Tendon disorder [None]
  - Abdominal discomfort [None]
  - Food intolerance [None]
